FAERS Safety Report 6215868-6 (Version None)
Quarter: 2009Q2

REPORT INFORMATION
  Report Type: 
  Country: None (occurrence: None)
  Receive Date: 20090605
  Receipt Date: 20090526
  Transmission Date: 20091009
  Serious: Yes (Death)
  Sender: FDA-Public Use
  Company Number: BR-JNJFOC-20090406785

PATIENT
  Age: 68 Year
  Sex: Male
  Weight: 61.24 kg

DRUGS (2)
  1. REMICADE [Suspect]
     Route: 042
  2. REMICADE [Suspect]
     Indication: PSORIASIS
     Route: 042

REACTIONS (5)
  - ASTHENIA [None]
  - DEATH [None]
  - PANIC REACTION [None]
  - PLEURAL INFECTION [None]
  - STAPHYLOCOCCAL INFECTION [None]
